FAERS Safety Report 13655861 (Version 1)
Quarter: 2017Q2

REPORT INFORMATION
  Report Type: Report from Study
  Country: FR (occurrence: FR)
  Receive Date: 20170615
  Receipt Date: 20170615
  Transmission Date: 20170830
  Serious: Yes (Life-Threatening, Other)
  Sender: FDA-Public Use
  Company Number: FR-ROCHE-1949731

PATIENT

DRUGS (1)
  1. PEG-INTERFERON ALFA 2A [Suspect]
     Active Substance: PEGINTERFERON ALFA-2A
     Indication: CHRONIC HEPATITIS B
     Route: 058

REACTIONS (6)
  - Neutropenia [Unknown]
  - Arthralgia [Unknown]
  - Asthenia [Unknown]
  - Hallucination [Unknown]
  - Sciatica [Unknown]
  - Leukopenia [Unknown]
